FAERS Safety Report 10313868 (Version 2)
Quarter: 2014Q3

REPORT INFORMATION
  Report Type: Spontaneous
  Country: DE (occurrence: DE)
  Receive Date: 20140718
  Receipt Date: 20140718
  Transmission Date: 20150326
  Serious: Yes (Life-Threatening, Hospitalization)
  Sender: FDA-Public Use
  Company Number: DE-009507513-1407DEU001343

PATIENT
  Age: 46 Year
  Sex: Female

DRUGS (1)
  1. INEGY [Suspect]
     Active Substance: EZETIMIBE\SIMVASTATIN
     Indication: HYPERCHOLESTEROLAEMIA
     Dosage: STRENGTH: 10 (UNITS UNKNOWN), 1 TABLET A DAY, TOTAL DAILY DOSE 10 MG EZETEMIBE/?MG SIMVASTATIN
     Route: 048
     Dates: start: 201404, end: 20140528

REACTIONS (2)
  - Drug-induced liver injury [Recovered/Resolved]
  - Haemochromatosis [Unknown]

NARRATIVE: CASE EVENT DATE: 2014
